FAERS Safety Report 10569194 (Version 3)
Quarter: 2014Q4

REPORT INFORMATION
  Report Type: Report from Study
  Country: DE (occurrence: DE)
  Receive Date: 20141106
  Receipt Date: 20141126
  Transmission Date: 20150529
  Serious: Yes (Hospitalization)
  Sender: FDA-Public Use
  Company Number: PHHO2014DE014749

PATIENT
  Age: 54 Year
  Sex: Male
  Weight: 87.5 kg

DRUGS (4)
  1. DICLOFENAC [Concomitant]
     Active Substance: DICLOFENAC
     Indication: BONE PAIN
     Dosage: 75 MG, TID
     Route: 065
     Dates: start: 201409
  2. VEMURAFENIB [Suspect]
     Active Substance: VEMURAFENIB
     Dosage: 240 MG, 4-0-4
     Route: 065
     Dates: start: 20141110
  3. PANTOPRAZOL ACTAVIS [Suspect]
     Active Substance: PANTOPRAZOLE SODIUM
     Indication: PROPHYLAXIS AGAINST GASTROINTESTINAL ULCER
     Dosage: 20 MG, QD
     Route: 065
     Dates: start: 20141020
  4. VEMURAFENIB [Suspect]
     Active Substance: VEMURAFENIB
     Indication: METASTATIC MALIGNANT MELANOMA
     Dosage: 240 MG, 4-0-4
     Route: 065
     Dates: start: 20141021, end: 20141031

REACTIONS (2)
  - Rash maculo-papular [Recovered/Resolved]
  - Blister [Recovered/Resolved]

NARRATIVE: CASE EVENT DATE: 20141031
